FAERS Safety Report 17759013 (Version 1)
Quarter: 2020Q2

REPORT INFORMATION
  Report Type: Spontaneous
  Country: US (occurrence: US)
  Receive Date: 20200508
  Receipt Date: 20200508
  Transmission Date: 20200714
  Serious: No
  Sender: FDA-Public Use
  Company Number: US-GLAXOSMITHKLINE-US2020075673

PATIENT
  Age: 65 Year
  Sex: Female

DRUGS (3)
  1. PREDNISONE. [Suspect]
     Active Substance: PREDNISONE
     Indication: PRODUCT USED FOR UNKNOWN INDICATION
     Dosage: UNK
     Route: 065
     Dates: start: 20200425
  2. ADVAIR HFA [Suspect]
     Active Substance: FLUTICASONE PROPIONATE\SALMETEROL XINAFOATE
     Dosage: 2 PUFF(S), BID (230/21 MCG)
     Route: 055
     Dates: start: 2019
  3. ADVAIR HFA [Suspect]
     Active Substance: FLUTICASONE PROPIONATE\SALMETEROL XINAFOATE
     Indication: ASTHMA
     Dosage: 2 PUFF(S), BID (115/21 MCG)
     Route: 055

REACTIONS (7)
  - Hypoaesthesia oral [Recovering/Resolving]
  - Aphonia [Unknown]
  - Wrong technique in device usage process [Unknown]
  - Anaesthesia oral [Recovering/Resolving]
  - Overdose [Unknown]
  - Palpitations [Unknown]
  - Cough [Unknown]

NARRATIVE: CASE EVENT DATE: 20200502
